FAERS Safety Report 9181342 (Version 1)
Quarter: 2013Q1

REPORT INFORMATION
  Report Type: Spontaneous
  Country: US (occurrence: None)
  Receive Date: 20130320
  Receipt Date: 20130320
  Transmission Date: 20140127
  Serious: Yes (Death)
  Sender: FDA-Public Use
  Company Number: 2013NUEUSA00166

PATIENT
  Sex: Female

DRUGS (2)
  1. NUEDEXTA [Suspect]
     Dates: start: 201302
  2. ALL OTHER THERAPEUTIC PRODUCTS [Concomitant]

REACTIONS (1)
  - Atrioventricular block [None]
